FAERS Safety Report 5798582-0 (Version None)
Quarter: 2008Q3

REPORT INFORMATION
  Report Type: 
  Country: None (occurrence: None)
  Receive Date: 20080701
  Receipt Date: 20080701
  Transmission Date: 20090109
  Serious: Yes (Hospitalization)
  Sender: FDA-Public Use
  Company Number: None

PATIENT
  Age: 54 Year
  Sex: Male

DRUGS (2)
  1. INDOMETHACIN [Suspect]
     Indication: GOUT
     Dosage: 50 MG QID PO
     Route: 048
     Dates: start: 20080501, end: 20080511
  2. IBUPROFEN TABLETS [Suspect]
     Indication: PAIN
     Dosage: 200 MG PRN
     Dates: start: 20080501, end: 20080530

REACTIONS (2)
  - DEHYDRATION [None]
  - RENAL FAILURE ACUTE [None]
